FAERS Safety Report 8495008-3 (Version None)
Quarter: 2012Q3

REPORT INFORMATION
  Report Type: 
  Country: None (occurrence: None)
  Receive Date: 20120709
  Receipt Date: 20120629
  Transmission Date: 20120928
  Serious: Yes (Hospitalization)
  Sender: FDA-Public Use
  Company Number: AT-JNJFOC-20120613934

PATIENT
  Sex: Female
  Weight: 76 kg

DRUGS (5)
  1. PANTOPRAZOLE SODIUM [Concomitant]
     Indication: CROHN'S DISEASE
     Dates: start: 20120417
  2. REMICADE [Suspect]
     Route: 042
     Dates: start: 20120227
  3. AZATHIOPRINE SODIUM [Concomitant]
     Indication: CROHN'S DISEASE
     Dates: start: 20101101
  4. REMICADE [Suspect]
     Indication: CROHN'S DISEASE
     Route: 042
     Dates: start: 20120110
  5. MESALAMINE [Concomitant]
     Indication: CROHN'S DISEASE
     Dates: start: 20120417

REACTIONS (2)
  - ERYTHEMA NODOSUM [None]
  - BASAL CELL CARCINOMA [None]
